FAERS Safety Report 22110506 (Version 1)
Quarter: 2023Q1

REPORT INFORMATION
  Report Type: Spontaneous
  Country: JP (occurrence: None)
  Receive Date: 20230317
  Receipt Date: 20230317
  Transmission Date: 20230417
  Serious: Yes (Hospitalization, Other)
  Sender: FDA-Public Use
  Company Number: 2023A019702

PATIENT
  Age: 78 Year
  Sex: Female

DRUGS (2)
  1. LYNPARZA [Suspect]
     Active Substance: OLAPARIB
     Indication: Ovarian cancer
     Route: 048
     Dates: start: 202210, end: 20230113
  2. AVASTIN [Concomitant]
     Active Substance: BEVACIZUMAB
     Indication: Ovarian cancer
     Dosage: DOSE UNKNOWN
     Dates: start: 202210, end: 20230113

REACTIONS (4)
  - Anaemia [Recovering/Resolving]
  - Protein urine present [Unknown]
  - Malaise [Recovering/Resolving]
  - Performance status decreased [Recovered/Resolved]

NARRATIVE: CASE EVENT DATE: 20230113
